FAERS Safety Report 19057968 (Version 1)
Quarter: 2021Q1

REPORT INFORMATION
  Report Type: Spontaneous
  Country: US (occurrence: US)
  Receive Date: 20210324
  Receipt Date: 20210324
  Transmission Date: 20210420
  Serious: No
  Sender: FDA-Public Use
  Company Number: US-UPSHER-SMITH LABORATORIES, LLC-2020USL00446

PATIENT
  Age: 79 Year
  Sex: Female
  Weight: 81.63 kg

DRUGS (10)
  1. PREVALITE [Suspect]
     Active Substance: CHOLESTYRAMINE
     Indication: DIARRHOEA
     Dosage: 4 G, 1X/DAY
     Route: 048
     Dates: start: 20200804
  2. SIMVASTATIN. [Concomitant]
     Active Substance: SIMVASTATIN
     Dosage: 0.5 TABLETS
  3. ATENOLOL. [Concomitant]
     Active Substance: ATENOLOL
  4. LOSARTAN. [Concomitant]
     Active Substance: LOSARTAN
  5. TYLENOL [Concomitant]
     Active Substance: ACETAMINOPHEN
     Dosage: 300 MG, 1X/DAY
  6. OTC GENERIC ALLERGY MEDICINE [Concomitant]
  7. VITAMIN A [Concomitant]
     Active Substance: VITAMIN A
  8. UNSPECIFIED MILD GENERIC ANTACID [Concomitant]
     Dosage: UNK, 2X/DAY
  9. GABAPENTIN. [Concomitant]
     Active Substance: GABAPENTIN
     Dosage: 900 MG
  10. CITRACAL [Concomitant]
     Active Substance: CALCIUM CITRATE
     Dosage: 1200 UNK

REACTIONS (4)
  - Eructation [Recovered/Resolved]
  - Nausea [Recovered/Resolved]
  - Gastrointestinal sounds abnormal [Recovered/Resolved]
  - Diarrhoea [Recovered/Resolved]

NARRATIVE: CASE EVENT DATE: 202008
